FAERS Safety Report 22649648 (Version 1)
Quarter: 2023Q2

REPORT INFORMATION
  Report Type: Report from Study
  Country: GB (occurrence: GB)
  Receive Date: 20230628
  Receipt Date: 20230628
  Transmission Date: 20230721
  Serious: Yes (Other)
  Sender: FDA-Public Use
  Company Number: GB-TEVA-2023-GB-2901376

PATIENT
  Sex: Female

DRUGS (2)
  1. AJOVY [Suspect]
     Active Substance: FREMANEZUMAB-VFRM
     Indication: Headache
     Route: 058
     Dates: start: 202010
  2. AJOVY [Suspect]
     Active Substance: FREMANEZUMAB-VFRM
     Indication: Migraine

REACTIONS (6)
  - Anxiety [Unknown]
  - Insomnia [Unknown]
  - Abnormal dreams [Unknown]
  - Fatigue [Unknown]
  - Impaired work ability [Unknown]
  - Aphasia [Unknown]
